FAERS Safety Report 21858917 (Version 4)
Quarter: 2023Q1

REPORT INFORMATION
  Report Type: Report from Study
  Country: US (occurrence: US)
  Receive Date: 20230113
  Receipt Date: 20230227
  Transmission Date: 20230417
  Serious: Yes (Death, Hospitalization, Other)
  Sender: FDA-Public Use
  Company Number: US-AUROBINDO-AUR-APL-2022-044668

PATIENT
  Age: 56 Year
  Sex: Female
  Weight: 59 kg

DRUGS (4)
  1. BELEODAQ [Suspect]
     Active Substance: BELINOSTAT
     Indication: Ovarian cancer metastatic
     Dosage: 1000 MILLIGRAM/SQ. METER (D1-5, 21 DAY CYCLE)
     Route: 042
     Dates: start: 20220502, end: 20230217
  2. BELEODAQ [Suspect]
     Active Substance: BELINOSTAT
     Indication: Ovarian cancer
  3. TALAZOPARIB [Suspect]
     Active Substance: TALAZOPARIB
     Indication: Ovarian cancer metastatic
     Dosage: 1 MILLIGRAM, ONCE A DAY
     Route: 048
     Dates: start: 20220502, end: 20230217
  4. TALAZOPARIB [Suspect]
     Active Substance: TALAZOPARIB
     Indication: Ovarian cancer

REACTIONS (6)
  - Disease progression [Fatal]
  - Small intestinal obstruction [Not Recovered/Not Resolved]
  - Abdominal pain [Recovered/Resolved]
  - Embolism [Not Recovered/Not Resolved]
  - Dyspnoea [Unknown]
  - Chest discomfort [Unknown]

NARRATIVE: CASE EVENT DATE: 20221011
